FAERS Safety Report 9524841 (Version 1)
Quarter: 2013Q1

REPORT INFORMATION
  Report Type: Spontaneous
  Country: US (occurrence: None)
  Receive Date: 20130305
  Receipt Date: 20130305
  Transmission Date: 20140127
  Serious: Yes (Disabling)
  Sender: FDA-Public Use
  Company Number: 163-21880-12023175

PATIENT
  Age: 67 Year
  Sex: Male
  Weight: 88 kg

DRUGS (8)
  1. REVLIMID (LENALIDOMIDE) (25 MILLIGRAM, CAPSULES) [Suspect]
     Indication: PLASMA CELL MYELOMA
     Route: 048
     Dates: start: 201011
  2. METHADONE [Concomitant]
  3. OXYCODONE [Concomitant]
  4. OMEPRAZOLE [Concomitant]
  5. VALACYCLOVIR (VALACICLOVIR HYDROCHLORIDE) [Concomitant]
  6. FOLIC ACID [Concomitant]
  7. ASPIRIN (ACETYLSALICYLIC ACID) [Concomitant]
  8. TRIAMCINOLONE [Concomitant]

REACTIONS (1)
  - Cerebral thrombosis [None]
